FAERS Safety Report 4398764-9 (Version None)
Quarter: 2004Q3

REPORT INFORMATION
  Report Type: 
  Country: None (occurrence: None)
  Receive Date: 20040712
  Receipt Date: 20040617
  Transmission Date: 20050211
  Serious: Yes (Other)
  Sender: FDA-Public Use
  Company Number: USA040670389

PATIENT
  Age: 36 Year
  Sex: Female
  Weight: 64 kg

DRUGS (1)
  1. HUMALOG [Suspect]
     Indication: GESTATIONAL DIABETES
     Dosage: 66 U DAY
     Dates: start: 19860101

REACTIONS (8)
  - ABNORMAL BEHAVIOUR [None]
  - ANTEPARTUM HAEMORRHAGE [None]
  - BLOOD GLUCOSE INCREASED [None]
  - DRUG EXPOSURE DURING PREGNANCY [None]
  - INDUCED LABOUR [None]
  - PANCREATIC DISORDER [None]
  - PLACENTAL DISORDER [None]
  - POSTPARTUM HAEMORRHAGE [None]
